FAERS Safety Report 16816919 (Version 1)
Quarter: 2019Q3

REPORT INFORMATION
  Report Type: Spontaneous
  Country: US (occurrence: US)
  Receive Date: 20190917
  Receipt Date: 20190917
  Transmission Date: 20191005
  Serious: No
  Sender: FDA-Public Use
  Company Number: US-RECKITT BENCKISER HEALTHCARE INT LIMITED-RB-94787-2018

PATIENT
  Age: 74 Year
  Sex: Female

DRUGS (2)
  1. SUPLEMENTO MULTIVITAMINICO CON HIERRO GM (IRON\VITAMINS NOS) [Suspect]
     Active Substance: IRON\VITAMINS
  2. MUCINEX [Suspect]
     Active Substance: GUAIFENESIN
     Indication: PRODUCT USED FOR UNKNOWN INDICATION
     Dosage: 1 DOSAGE FORM, SINGLE
     Route: 065
     Dates: start: 20181201, end: 20181201

REACTIONS (1)
  - Diarrhoea [Recovered/Resolved]

NARRATIVE: CASE EVENT DATE: 20181202
